FAERS Safety Report 23257230 (Version 1)
Quarter: 2023Q4

REPORT INFORMATION
  Report Type: Spontaneous
  Country: GB (occurrence: GB)
  Receive Date: 20231204
  Receipt Date: 20231204
  Transmission Date: 20240110
  Serious: Yes (Other)
  Sender: FDA-Public Use
  Company Number: None

PATIENT
  Age: 61 Year
  Sex: Female
  Weight: 146.5 kg

DRUGS (12)
  1. CELECOXIB [Suspect]
     Active Substance: CELECOXIB
     Indication: Product used for unknown indication
     Dates: start: 20230909
  2. UNSPECIFIED INGREDIENT [Concomitant]
     Active Substance: UNSPECIFIED INGREDIENT
     Indication: Skin ulcer
     Dosage: AS DIRECTED?ALTIVEN CLASS 1 (18-21MMHG)BELOW KNEE OPEN TOE GARMENT
     Dates: start: 20230920, end: 20231102
  3. UNSPECIFIED INGREDIENT [Concomitant]
     Active Substance: UNSPECIFIED INGREDIENT
     Dosage: AS DIRECTED?HYPAFIX TAPE 5CM
     Dates: start: 20230920, end: 20231102
  4. UNSPECIFIED INGREDIENT [Concomitant]
     Active Substance: UNSPECIFIED INGREDIENT
     Dosage: AS DIRECTED?JELONET DRESSING 10CM X 10CM
     Dates: start: 20230920, end: 20231102
  5. UNSPECIFIED INGREDIENT [Concomitant]
     Active Substance: UNSPECIFIED INGREDIENT
     Dosage: AS DIRECTED?K-LITE BANDAGE 10CM X 4.5M
     Dates: start: 20230920, end: 20231102
  6. UNSPECIFIED INGREDIENT [Concomitant]
     Active Substance: UNSPECIFIED INGREDIENT
     Dosage: AS DIRECTED?K-SOFT BANDAGE 10CM X 3.5M
     Dates: start: 20230920, end: 20231102
  7. UNSPECIFIED INGREDIENT [Concomitant]
     Active Substance: UNSPECIFIED INGREDIENT
     Dosage: AD?MEPILEX BORDER DRESSING 15CM X 17.5CM
     Dates: start: 20230920, end: 20231102
  8. UNSPECIFIED INGREDIENT [Concomitant]
     Active Substance: UNSPECIFIED INGREDIENT
     Dosage: AS DIRECTED?STERILE DRESSING PACK SPECIFICATION 10
     Dates: start: 20230920, end: 20231102
  9. FLUCLOXACILLIN. [Concomitant]
     Indication: Skin ulcer
     Dates: start: 20230920, end: 20231019
  10. CHLORHEXIDINE GLUCONATE [Concomitant]
     Active Substance: CHLORHEXIDINE GLUCONATE
     Indication: Skin ulcer
     Dosage: WASH AFFECTED AREAS
     Dates: start: 20230920, end: 20231102
  11. PARAFFIN\WAX, EMULSIFYING [Concomitant]
     Active Substance: PARAFFIN\WAX, EMULSIFYING
     Indication: Skin ulcer
     Dosage: APPLY TO DRY AREAS OF LEGS
     Dates: start: 20230920, end: 20231102
  12. POVIDONE-IODINE [Concomitant]
     Active Substance: POVIDONE-IODINE
     Indication: Product used for unknown indication
     Dosage: AD
     Dates: start: 20230920, end: 20231102

REACTIONS (1)
  - Vision blurred [Recovered/Resolved]

NARRATIVE: CASE EVENT DATE: 20231017
